FAERS Safety Report 10248704 (Version 1)
Quarter: 2014Q2

REPORT INFORMATION
  Report Type: Spontaneous
  Country: US (occurrence: None)
  Receive Date: 20140618
  Receipt Date: 20140618
  Transmission Date: 20141212
  Serious: Yes (Hospitalization)
  Sender: FDA-Public Use
  Company Number: None

PATIENT
  Age: 47 Year
  Sex: Female
  Weight: 67.8 kg

DRUGS (2)
  1. ABT 888 [Suspect]
     Indication: PANCREATIC CARCINOMA
     Dosage: 200 MG BID X 7 DAYS Q 2 W
     Dates: start: 20140521, end: 20140611
  2. 5FU [Suspect]
     Indication: PANCREATIC CARCINOMA
     Dosage: 4296 MG Q 2 WEEKS
     Dates: start: 20140521, end: 20140606

REACTIONS (1)
  - Febrile neutropenia [None]
